FAERS Safety Report 15497420 (Version 8)
Quarter: 2021Q1

REPORT INFORMATION
  Report Type: Spontaneous
  Country: US (occurrence: US)
  Receive Date: 20181015
  Receipt Date: 20210129
  Transmission Date: 20210419
  Serious: No
  Sender: FDA-Public Use
  Company Number: US-PFIZER INC-2018417047

PATIENT
  Age: 53 Year
  Sex: Female

DRUGS (1)
  1. LYRICA [Suspect]
     Active Substance: PREGABALIN
     Dosage: 50 MG, UNK

REACTIONS (15)
  - Intentional product use issue [Unknown]
  - Tremor [Unknown]
  - Nerve injury [Unknown]
  - Herpes zoster [Unknown]
  - Headache [Unknown]
  - Diarrhoea [Unknown]
  - Withdrawal syndrome [Unknown]
  - Large intestine polyp [Unknown]
  - Visual impairment [Unknown]
  - Pain [Unknown]
  - Feeling cold [Unknown]
  - Anxiety [Unknown]
  - Decreased appetite [Unknown]
  - Migraine [Unknown]
  - Crying [Unknown]
